FAERS Safety Report 11731879 (Version 1)
Quarter: 2015Q4

REPORT INFORMATION
  Report Type: Spontaneous
  Country: US (occurrence: US)
  Receive Date: 20151110
  Receipt Date: 20151110
  Transmission Date: 20160304
  Serious: No
  Sender: FDA-Public Use
  Company Number: US-ELI_LILLY_AND_COMPANY-US201203008522

PATIENT
  Age: 63 Year
  Sex: Female

DRUGS (2)
  1. FORTEO [Suspect]
     Active Substance: TERIPARATIDE
     Indication: OSTEOPOROSIS
     Dosage: 20 UG, QD
     Route: 065
     Dates: start: 201102, end: 201102
  2. FORTEO [Suspect]
     Active Substance: TERIPARATIDE
     Dosage: 10 UG, QD
     Route: 065

REACTIONS (13)
  - Injection site pain [Unknown]
  - Pain [Unknown]
  - Dysgeusia [Unknown]
  - Drug intolerance [Unknown]
  - Blood pressure increased [Unknown]
  - Wrong technique in product usage process [Not Recovered/Not Resolved]
  - Dizziness [Unknown]
  - Oral pain [Not Recovered/Not Resolved]
  - Dyspnoea [Unknown]
  - Underdose [Not Recovered/Not Resolved]
  - Medication error [Unknown]
  - Constipation [Unknown]
  - Heart rate increased [Unknown]

NARRATIVE: CASE EVENT DATE: 201102
